FAERS Safety Report 6589584-5 (Version None)
Quarter: 2010Q1

REPORT INFORMATION
  Report Type: 
  Country: None (occurrence: None)
  Receive Date: 20100212
  Receipt Date: 20100125
  Transmission Date: 20100710
  Serious: Yes (Life-Threatening, Hospitalization, Disabling, Other)
  Sender: FDA-Public Use
  Company Number: TRP_06555_2009

PATIENT
  Age: 26 Year
  Sex: Male

DRUGS (6)
  1. RIBAPAK (NOT SPECIFIED) [Suspect]
     Indication: HEPATITIS C
     Dates: start: 20090303, end: 20090930
  2. PEGASYS [Suspect]
     Indication: HEPATITIS C
     Dosage: 180 UG 1X/WEEK SUBCUTANEOUS
     Route: 058
     Dates: start: 20090303, end: 20090930
  3. ZOLOFT [Concomitant]
  4. MARINOL [Concomitant]
  5. MULTIVITAMINS PLUS IRON [Concomitant]
  6. MULTI-VITAMINS [Concomitant]

REACTIONS (5)
  - BACK PAIN [None]
  - CYST [None]
  - EXTRADURAL ABSCESS [None]
  - INTERVERTEBRAL DISCITIS [None]
  - OSTEOMYELITIS [None]
